FAERS Safety Report 24637228 (Version 3)
Quarter: 2025Q2

REPORT INFORMATION
  Report Type: Spontaneous
  Country: CA (occurrence: CA)
  Receive Date: 20241119
  Receipt Date: 20250422
  Transmission Date: 20250716
  Serious: Yes (Other)
  Sender: PFIZER
  Company Number: CA-PFIZER INC-202400301125

PATIENT
  Age: 76 Year
  Sex: Male

DRUGS (10)
  1. VYNDAMAX [Suspect]
     Active Substance: TAFAMIDIS
     Indication: Cardiac amyloidosis
     Dosage: 61MG 1X/DAY
     Route: 048
     Dates: start: 20241105
  2. ALLOPURINOL [Concomitant]
     Active Substance: ALLOPURINOL
  3. APIXABAN [Concomitant]
     Active Substance: APIXABAN
  4. BISOPROLOL [Concomitant]
     Active Substance: BISOPROLOL
  5. DAPAGLIFLOZIN [Concomitant]
     Active Substance: DAPAGLIFLOZIN
  6. ENTRESTO [Concomitant]
     Active Substance: SACUBITRIL\VALSARTAN
  7. FUROSEMIDE [Concomitant]
     Active Substance: FUROSEMIDE
  8. ROSUVASTATIN [Concomitant]
     Active Substance: ROSUVASTATIN
  9. SPIRONOLACTONE [Concomitant]
     Active Substance: SPIRONOLACTONE
  10. TAMSULOSIN [Concomitant]
     Active Substance: TAMSULOSIN

REACTIONS (3)
  - Carpal tunnel decompression [Unknown]
  - Glomerular filtration rate decreased [Unknown]
  - Condition aggravated [Not Recovered/Not Resolved]

NARRATIVE: CASE EVENT DATE: 20241112
